FAERS Safety Report 8893260 (Version 3)
Quarter: 2013Q1

REPORT INFORMATION
  Report Type: Spontaneous
  Country: US (occurrence: None)
  Receive Date: 20121031
  Receipt Date: 20130219
  Transmission Date: 20140127
  Serious: Yes (Hospitalization, Other)
  Sender: FDA-Public Use
  Company Number: ADR-2012-01983

PATIENT
  Sex: Female

DRUGS (6)
  1. BACLOFEN [Suspect]
     Indication: PAIN
  2. BACLOFEN [Suspect]
  3. BUPIVACAINE [Concomitant]
  4. MORPHINE [Concomitant]
  5. DILAUDID [Concomitant]
  6. FENTANYL [Concomitant]

REACTIONS (10)
  - Hypoaesthesia [None]
  - Road traffic accident [None]
  - Device dislocation [None]
  - Device malfunction [None]
  - Fall [None]
  - Contusion [None]
  - Withdrawal syndrome [None]
  - Malaise [None]
  - Dehydration [None]
  - Treatment noncompliance [None]
